FAERS Safety Report 6203160-5 (Version None)
Quarter: 2009Q2

REPORT INFORMATION
  Report Type: 
  Country: None (occurrence: None)
  Receive Date: 20090526
  Receipt Date: 20090526
  Transmission Date: 20091009
  Serious: Yes (Death, Hospitalization)
  Sender: FDA-Public Use
  Company Number: None

PATIENT
  Sex: Male
  Weight: 78 kg

DRUGS (5)
  1. CISPLATIN [Suspect]
     Dosage: 402 MG
     Dates: end: 20081217
  2. LABETALOL HCL [Concomitant]
  3. PRILOSEC [Concomitant]
  4. FENTANYL [Concomitant]
  5. OXYCODONE [Concomitant]

REACTIONS (8)
  - ANOXIC ENCEPHALOPATHY [None]
  - CARDIAC ARREST [None]
  - HAEMOPTYSIS [None]
  - IMPAIRED HEALING [None]
  - PHARYNGEAL NECROSIS [None]
  - PUPIL FIXED [None]
  - ULCER [None]
  - UNRESPONSIVE TO STIMULI [None]
